FAERS Safety Report 6977505-2 (Version None)
Quarter: 2010Q3

REPORT INFORMATION
  Report Type: 
  Country: None (occurrence: None)
  Receive Date: 20100910
  Receipt Date: 20100902
  Transmission Date: 20110219
  Serious: Yes (Hospitalization)
  Sender: FDA-Public Use
  Company Number: JP-AMGEN-US379839

PATIENT
  Age: 75 Year
  Sex: Female

DRUGS (3)
  1. ENBREL [Suspect]
     Indication: RHEUMATOID ARTHRITIS
     Route: 058
     Dates: start: 20090801
  2. EVISTA [Concomitant]
     Dosage: UNSPECIFIED
     Route: 048
  3. UNSPECIFIED STEROIDS [Concomitant]

REACTIONS (1)
  - ABDOMINAL PAIN [None]
